FAERS Safety Report 20057242 (Version 1)
Quarter: 2021Q4

REPORT INFORMATION
  Report Type: Spontaneous
  Country: US (occurrence: None)
  Receive Date: 20211110
  Receipt Date: 20211110
  Transmission Date: 20220303
  Serious: Yes (Other)
  Sender: FDA-Public Use
  Company Number: None

PATIENT
  Age: 59 Year
  Sex: Female
  Weight: 104.8 kg

DRUGS (4)
  1. BARICITINIB [Suspect]
     Active Substance: BARICITINIB
     Indication: COVID-19
     Dosage: FREQUENCY : DAILY;?
     Route: 048
     Dates: start: 20211103, end: 20211108
  2. Enoxaparin 40 mg BID [Concomitant]
     Dates: start: 20211103, end: 20211108
  3. dexamethasone 6 mg daily [Concomitant]
     Dates: start: 20211103
  4. remdesivir 100 mg daily [Concomitant]
     Dates: start: 20211102, end: 20211106

REACTIONS (1)
  - Deep vein thrombosis [None]

NARRATIVE: CASE EVENT DATE: 20211108
